FAERS Safety Report 19480787 (Version 3)
Quarter: 2021Q3

REPORT INFORMATION
  Report Type: Spontaneous
  Country: JP (occurrence: JP)
  Receive Date: 20210701
  Receipt Date: 20210825
  Transmission Date: 20211014
  Serious: Yes (Other)
  Sender: FDA-Public Use
  Company Number: NVSJ2021JP006980

PATIENT
  Age: 65 Year
  Sex: Female

DRUGS (5)
  1. BEOVU [Suspect]
     Active Substance: BROLUCIZUMAB-DBLL
     Dosage: 6 MG
     Route: 031
     Dates: start: 20210129, end: 20210129
  2. BEOVU [Suspect]
     Active Substance: BROLUCIZUMAB-DBLL
     Dosage: 6 MG
     Route: 031
     Dates: start: 20200918, end: 20200918
  3. BEOVU [Suspect]
     Active Substance: BROLUCIZUMAB-DBLL
     Dosage: 6 MG
     Route: 031
     Dates: start: 20210423, end: 20210423
  4. BEOVU [Suspect]
     Active Substance: BROLUCIZUMAB-DBLL
     Dosage: 6 MG
     Route: 031
     Dates: start: 20201113, end: 20201113
  5. BEOVU [Suspect]
     Active Substance: BROLUCIZUMAB-DBLL
     Indication: AGE-RELATED MACULAR DEGENERATION
     Dosage: 6 MG
     Route: 031
     Dates: start: 20200807, end: 20200807

REACTIONS (10)
  - Retinal vasculitis [Recovered/Resolved]
  - Vision blurred [Unknown]
  - Keratic precipitates [Unknown]
  - Visual acuity reduced transiently [Recovered/Resolved]
  - Subretinal fluid [Recovered/Resolved]
  - Anterior chamber inflammation [Recovering/Resolving]
  - Age-related macular degeneration [Unknown]
  - Vitreous opacities [Not Recovered/Not Resolved]
  - Abnormal sensation in eye [Unknown]
  - Disease recurrence [Unknown]

NARRATIVE: CASE EVENT DATE: 202104
